FAERS Safety Report 5268531-2 (Version None)
Quarter: 2007Q1

REPORT INFORMATION
  Report Type: 
  Country: None (occurrence: None)
  Receive Date: 20070313
  Receipt Date: 20070228
  Transmission Date: 20070707
  Serious: Yes (Death)
  Sender: FDA-Public Use
  Company Number: 2007BI000803

PATIENT
  Age: 61 Year
  Sex: Female

DRUGS (16)
  1. AVONEX [Suspect]
     Indication: MULTIPLE SCLEROSIS
     Dosage: 30 UG;QW;IM
     Route: 030
     Dates: start: 20020122
  2. AMBIEN [Concomitant]
  3. CYMBALTA [Concomitant]
  4. BACLOFEN [Concomitant]
  5. PHENERGAN HCL [Concomitant]
  6. VALIUM [Concomitant]
  7. LEVOTHYROXINE SODIUM [Concomitant]
  8. MIRALAX [Concomitant]
  9. ADDERALL 10 [Concomitant]
  10. OXYCONTIN [Concomitant]
  11. ROXICODONE [Concomitant]
  12. DITROPAN XL [Concomitant]
  13. ESTRADIAL [Concomitant]
  14. ZELNORM [Concomitant]
  15. ACIPHEX [Concomitant]
  16. CEREFOLIN [Concomitant]

REACTIONS (2)
  - FIBROMYALGIA [None]
  - SYSTEMIC LUPUS ERYTHEMATOSUS [None]
